FAERS Safety Report 9880947 (Version 1)
Quarter: 2014Q1

REPORT INFORMATION
  Report Type: Spontaneous
  Country: IT (occurrence: IT)
  Receive Date: 20140207
  Receipt Date: 20140207
  Transmission Date: 20141002
  Serious: Yes (Other)
  Sender: FDA-Public Use
  Company Number: IT-ASTRAZENECA-2014SE07151

PATIENT
  Age: 19366 Day
  Sex: Male

DRUGS (4)
  1. SEROQUEL [Suspect]
     Indication: PSYCHOTIC DISORDER
     Route: 048
     Dates: start: 20140108, end: 20140108
  2. SEROQUEL [Suspect]
     Indication: PSYCHOTIC DISORDER
     Route: 048
     Dates: start: 20140108, end: 20140108
  3. TAVOR [Suspect]
     Indication: ANXIETY
     Route: 048
     Dates: start: 20140108, end: 20140108
  4. MORE DRUGS [Concomitant]

REACTIONS (4)
  - Electrocardiogram abnormal [Recovered/Resolved]
  - Sopor [Recovered/Resolved]
  - Blood pressure decreased [Recovered/Resolved]
  - Heart rate increased [Recovered/Resolved]
